FAERS Safety Report 6243413-8 (Version None)
Quarter: 2009Q2

REPORT INFORMATION
  Report Type: 
  Country: None (occurrence: None)
  Receive Date: 20090622
  Receipt Date: 20090622
  Transmission Date: 20091009
  Serious: Yes (Disabling)
  Sender: FDA-Public Use
  Company Number: None

PATIENT
  Age: 63 Year
  Sex: Male
  Weight: 93.441 kg

DRUGS (1)
  1. ROGAINE 5 [Suspect]
     Indication: ALOPECIA
     Dosage: SMALL AMOUNT 2X DAILY TOP
     Route: 061
     Dates: start: 20081010, end: 20081210

REACTIONS (4)
  - ALOPECIA [None]
  - BLISTER [None]
  - HYPERSENSITIVITY [None]
  - SKIN EXFOLIATION [None]
